FAERS Safety Report 5309608-2 (Version None)
Quarter: 2007Q2

REPORT INFORMATION
  Report Type: 
  Country: None (occurrence: None)
  Receive Date: 20070424
  Receipt Date: 20070411
  Transmission Date: 20071010
  Serious: Yes (Other)
  Sender: FDA-Public Use
  Company Number: 2007AL001521

PATIENT
  Age: 44 Year
  Sex: Male

DRUGS (3)
  1. DIAZEPAM [Suspect]
     Indication: CONVULSION
     Dosage: PO
     Route: 048
  2. VIAGRA [Concomitant]
  3. PHENYTOIN [Concomitant]

REACTIONS (3)
  - DRUG INEFFECTIVE [None]
  - NERVOUSNESS [None]
  - PANIC ATTACK [None]
